FAERS Safety Report 5258474-2 (Version None)
Quarter: 2007Q1

REPORT INFORMATION
  Report Type: 
  Country: None (occurrence: None)
  Receive Date: 20070308
  Receipt Date: 20070301
  Transmission Date: 20070707
  Serious: Yes (Hospitalization)
  Sender: FDA-Public Use
  Company Number: SG-BAYER-200711252GDS

PATIENT
  Age: 97 Year
  Sex: Female

DRUGS (2)
  1. CIPROFLOXACIN [Suspect]
     Indication: URINARY TRACT INFECTION
     Route: 048
  2. CEFTRIAXONE [Concomitant]
     Indication: BRONCHOPNEUMONIA
     Route: 042

REACTIONS (1)
  - TUBERCULOSIS [None]
